FAERS Safety Report 9878188 (Version 1)
Quarter: 2014Q1

REPORT INFORMATION
  Report Type: Spontaneous
  Country: BR (occurrence: BR)
  Receive Date: 20140206
  Receipt Date: 20140206
  Transmission Date: 20141002
  Serious: Yes (Hospitalization, Disabling)
  Sender: FDA-Public Use
  Company Number: BR-009507513-1402BRA001413

PATIENT
  Age: 23 Year
  Sex: Female
  Weight: 45 kg

DRUGS (3)
  1. COSOPT [Suspect]
     Indication: GLAUCOMA
     Dosage: 1 DROP IN EACH EYE, BID
     Route: 047
     Dates: start: 1997, end: 20140130
  2. XALATAN [Concomitant]
     Indication: GLAUCOMA
     Dosage: 1 DROP IN EACH EYE, QAM
     Route: 047
     Dates: start: 1997
  3. GANFORT [Concomitant]
     Dosage: UNK
     Route: 047

REACTIONS (7)
  - Glaucoma [Not Recovered/Not Resolved]
  - Intraocular pressure test abnormal [Not Recovered/Not Resolved]
  - Eye operation [Unknown]
  - Visual acuity reduced [Not Recovered/Not Resolved]
  - Cataract [Not Recovered/Not Resolved]
  - Eye pain [Not Recovered/Not Resolved]
  - Product quality issue [Unknown]
